FAERS Safety Report 4613868-0 (Version None)
Quarter: 2005Q1

REPORT INFORMATION
  Report Type: 
  Country: None (occurrence: None)
  Receive Date: 20050321
  Receipt Date: 20050310
  Transmission Date: 20050727
  Serious: Yes (Other)
  Sender: FDA-Public Use
  Company Number: PHEH2005US03044

PATIENT
  Sex: Female

DRUGS (1)
  1. ZOMETA [Suspect]
     Dosage: ^TOOK ZOMETA FOR 83 MONTHS^

REACTIONS (7)
  - BONE DENSITY INCREASED [None]
  - FAILURE OF IMPLANT [None]
  - FEMUR FRACTURE [None]
  - FRACTURE [None]
  - OSTEOGENESIS IMPERFECTA [None]
  - OSTEOSCLEROSIS [None]
  - THERAPEUTIC PROCEDURE [None]
